FAERS Safety Report 5308842-5 (Version None)
Quarter: 2007Q2

REPORT INFORMATION
  Report Type: 
  Country: None (occurrence: None)
  Receive Date: 20070426
  Receipt Date: 20070418
  Transmission Date: 20071010
  Serious: Yes (Death, Other)
  Sender: FDA-Public Use
  Company Number: JP-BRISTOL-MYERS SQUIBB COMPANY-12649208

PATIENT
  Age: 68 Year
  Sex: Male

DRUGS (3)
  1. MITOMYCIN [Suspect]
     Indication: METASTASES TO LIVER
     Route: 013
     Dates: start: 20011101, end: 20020301
  2. FLUOROURACIL [Suspect]
     Indication: METASTASES TO LIVER
     Route: 013
     Dates: start: 20011101, end: 20020301
  3. EPIRUBICIN [Suspect]
     Indication: METASTASES TO LIVER
     Route: 013
     Dates: start: 20011101, end: 20020301

REACTIONS (2)
  - ACUTE MYELOID LEUKAEMIA [None]
  - TREATMENT RELATED SECONDARY MALIGNANCY [None]
